FAERS Safety Report 23348302 (Version 3)
Quarter: 2024Q1

REPORT INFORMATION
  Report Type: Report from Study
  Country: CA (occurrence: CA)
  Receive Date: 20231228
  Receipt Date: 20240131
  Transmission Date: 20240410
  Serious: Yes (Other)
  Sender: FDA-Public Use
  Company Number: CA-HLS-202302984

PATIENT
  Age: 55 Year
  Sex: Male

DRUGS (4)
  1. CLOZARIL [Suspect]
     Active Substance: CLOZAPINE
     Indication: Schizophrenia
     Dosage: 25-50 MG STARTED ON 16-NOV-2023
     Route: 048
  2. BISOPROLOL FUMARATE [Concomitant]
     Active Substance: BISOPROLOL FUMARATE
     Indication: Product used for unknown indication
     Route: 065
  3. OLANZAPINE [Concomitant]
     Active Substance: OLANZAPINE
     Indication: Schizophrenia
     Dosage: 20-30 MG
     Route: 065
  4. LEVOMEPROMAZINE [Concomitant]
     Active Substance: LEVOMEPROMAZINE
     Indication: Schizophrenia
     Dosage: 25 MG
     Route: 065
     Dates: start: 202308, end: 202308

REACTIONS (7)
  - Atrial fibrillation [Unknown]
  - Blood pressure decreased [Unknown]
  - Cardiac failure [Recovered/Resolved with Sequelae]
  - Left ventricular dysfunction [Unknown]
  - Orthostatic hypotension [Recovering/Resolving]
  - Electrocardiogram QT prolonged [Unknown]
  - Electrocardiogram ST-T change [Unknown]

NARRATIVE: CASE EVENT DATE: 20230801
